FAERS Safety Report 17674222 (Version 1)
Quarter: 2020Q2

REPORT INFORMATION
  Report Type: Spontaneous
  Country: CA (occurrence: CA)
  Receive Date: 20200416
  Receipt Date: 20200416
  Transmission Date: 20200714
  Serious: Yes (Disabling, Other)
  Sender: FDA-Public Use
  Company Number: CA-TEVA-2020-CA-1222199

PATIENT
  Age: 5 Year
  Sex: Male
  Weight: 23 kg

DRUGS (7)
  1. L-ASPARAGINASE [Concomitant]
     Active Substance: ASPARAGINASE
     Route: 030
  2. PEGASPARAGINASE [Concomitant]
     Active Substance: PEGASPARGASE
  3. DOXORUBICINE [DOXORUBICIN] [Concomitant]
     Active Substance: DOXORUBICIN
  4. METHOTREXATE. [Concomitant]
     Active Substance: METHOTREXATE
  5. VINCRISTINE SULFATE. [Suspect]
     Active Substance: VINCRISTINE SULFATE
     Indication: ACUTE LYMPHOCYTIC LEUKAEMIA
     Route: 042
  6. CYTARABINE. [Concomitant]
     Active Substance: CYTARABINE
  7. MERCAPTOPURINE. [Concomitant]
     Active Substance: MERCAPTOPURINE

REACTIONS (11)
  - Gait disturbance [Unknown]
  - Balance disorder [Unknown]
  - Dysstasia [Unknown]
  - Pain in extremity [Unknown]
  - Gingival pain [Unknown]
  - Muscular weakness [Unknown]
  - Febrile neutropenia [Unknown]
  - Loss of personal independence in daily activities [Unknown]
  - Pain in jaw [Unknown]
  - Back pain [Unknown]
  - Neuropathy peripheral [Unknown]
